FAERS Safety Report 9501612 (Version 3)
Quarter: 2014Q1

REPORT INFORMATION
  Report Type: Spontaneous
  Country: US (occurrence: US)
  Receive Date: 20130905
  Receipt Date: 20140331
  Transmission Date: 20141002
  Serious: Yes (Death, Hospitalization, Other)
  Sender: FDA-Public Use
  Company Number: US-009507513-1309USA000962

PATIENT
  Sex: Female

DRUGS (8)
  1. FOSAMAX [Suspect]
     Indication: OSTEOPOROSIS
     Dosage: 70 MG, QW
     Route: 048
     Dates: start: 20051005, end: 20110627
  2. FOSAMAX [Suspect]
     Indication: OSTEOPENIA
     Dosage: 35 MG, QW
     Route: 048
  3. ALENDRONATE SODIUM [Suspect]
     Indication: OSTEOPOROSIS
     Dosage: 70 MG, QW
     Route: 048
     Dates: end: 2011
  4. ALENDRONATE SODIUM [Suspect]
     Indication: OSTEOPENIA
  5. VITAMIN D (UNSPECIFIED) [Concomitant]
     Indication: OSTEOPOROSIS
     Dosage: 1000 IU, UNK
     Dates: start: 1993, end: 20130508
  6. VITAMIN D (UNSPECIFIED) [Concomitant]
     Indication: OSTEOPENIA
  7. CALCIUM (UNSPECIFIED) [Concomitant]
     Indication: OSTEOPOROSIS
  8. CALCIUM (UNSPECIFIED) [Concomitant]
     Indication: OSTEOPENIA

REACTIONS (18)
  - Intramedullary rod insertion [Unknown]
  - Pneumonia aspiration [Fatal]
  - Hearing impaired [Unknown]
  - Dementia [Fatal]
  - Femur fracture [Unknown]
  - Low turnover osteopathy [Unknown]
  - Pain [Unknown]
  - Adverse event [Unknown]
  - Memory impairment [Unknown]
  - Osteoarthritis [Unknown]
  - Urinary incontinence [Unknown]
  - Visual acuity reduced [Unknown]
  - Dyspnoea exertional [Unknown]
  - Spondylitis [Unknown]
  - Arthropathy [Unknown]
  - Musculoskeletal pain [Unknown]
  - Gastrooesophageal reflux disease [Unknown]
  - Arthralgia [Unknown]
